FAERS Safety Report 13260810 (Version 1)
Quarter: 2017Q1

REPORT INFORMATION
  Report Type: Spontaneous
  Country: JP (occurrence: JP)
  Receive Date: 20170222
  Receipt Date: 20170222
  Transmission Date: 20170428
  Serious: Yes (Other)
  Sender: FDA-Public Use
  Company Number: JP-GILEAD-2016-0225053

PATIENT
  Age: 40 Year
  Sex: Male
  Weight: 103.7 kg

DRUGS (9)
  1. FAMOTIDIN [Concomitant]
     Indication: GASTRIC ULCER
  2. URSO [Concomitant]
     Active Substance: URSODIOL
     Indication: CHRONIC HEPATITIS C
  3. DEBERZA [Concomitant]
     Active Substance: TOFOGLIFLOZIN
     Indication: DIABETES MELLITUS
  4. METFORMIN HYDROCHLORIDE. [Concomitant]
     Active Substance: METFORMIN HYDROCHLORIDE
     Indication: DIABETES MELLITUS
  5. KAKKONTO                           /07985901/ [Concomitant]
     Indication: NASOPHARYNGITIS
  6. SOVALDI [Suspect]
     Active Substance: SOFOSBUVIR
     Indication: CHRONIC HEPATITIS C
     Dosage: 400 MG, UNK
     Route: 048
     Dates: start: 20151119, end: 20160210
  7. REBETOL [Suspect]
     Active Substance: RIBAVIRIN
     Indication: CHRONIC HEPATITIS C
     Dosage: UNK
     Route: 065
     Dates: start: 20151119, end: 20160210
  8. NEOPHAGEN C [Concomitant]
     Indication: CHRONIC HEPATITIS C
  9. JUVELA                             /00110502/ [Concomitant]
     Indication: VITAMIN E DEFICIENCY

REACTIONS (3)
  - Hepatitis C [Not Recovered/Not Resolved]
  - Drug ineffective [Not Recovered/Not Resolved]
  - Viral mutation identified [Unknown]

NARRATIVE: CASE EVENT DATE: 20160310
